FAERS Safety Report 6282692-8 (Version None)
Quarter: 2009Q3

REPORT INFORMATION
  Report Type: 
  Country: None (occurrence: None)
  Receive Date: 20090724
  Receipt Date: 20090716
  Transmission Date: 20100115
  Serious: Yes (Other)
  Sender: FDA-Public Use
  Company Number: AU-WATSON-2009-05545

PATIENT
  Age: 54 Year
  Sex: Female

DRUGS (3)
  1. FLUOROURACIL [Suspect]
     Indication: RECTAL CANCER METASTATIC
     Dosage: UNK
  2. LEUCOVORIN CALCIUM [Concomitant]
  3. OXALIPLATIN [Concomitant]
     Indication: RECTAL CANCER METASTATIC

REACTIONS (2)
  - ARTERIAL SPASM [None]
  - HEPATIC ARTERY OCCLUSION [None]
